FAERS Safety Report 23225346 (Version 1)
Quarter: 2023Q4

REPORT INFORMATION
  Report Type: Spontaneous
  Country: DE (occurrence: DE)
  Receive Date: 20231124
  Receipt Date: 20231124
  Transmission Date: 20240110
  Serious: Yes (Death, Hospitalization, Other)
  Sender: FDA-Public Use
  Company Number: None

PATIENT
  Age: 70 Year
  Sex: Female
  Weight: 62 kg

DRUGS (4)
  1. DOXORUBICIN HYDROCHLORIDE [Suspect]
     Active Substance: DOXORUBICIN HYDROCHLORIDE
     Indication: Ovarian cancer metastatic
     Dosage: 28.79 MG/M?
     Route: 042
     Dates: start: 20231109, end: 20231109
  2. DOXORUBICIN HYDROCHLORIDE [Suspect]
     Active Substance: DOXORUBICIN HYDROCHLORIDE
     Dosage: 28.79 MG/M?
     Route: 042
     Dates: start: 20231109, end: 20231109
  3. YONDELIS [Suspect]
     Active Substance: TRABECTEDIN
     Indication: Ovarian cancer metastatic
     Dosage: 1.06 MG/M?
     Route: 042
     Dates: start: 20231109, end: 20231109
  4. YONDELIS [Suspect]
     Active Substance: TRABECTEDIN
     Dosage: 1.06 MG/M?
     Route: 042
     Dates: start: 20231109, end: 20231109

REACTIONS (4)
  - Pulmonary oedema [Fatal]
  - Acute respiratory distress syndrome [Fatal]
  - Capillary leak syndrome [Fatal]
  - Pneumonitis [Fatal]

NARRATIVE: CASE EVENT DATE: 20231110
